FAERS Safety Report 6772979-4 (Version None)
Quarter: 2010Q2

REPORT INFORMATION
  Report Type: 
  Country: None (occurrence: None)
  Receive Date: 20100616
  Receipt Date: 20100611
  Transmission Date: 20101027
  Serious: Yes (Death, Other)
  Sender: FDA-Public Use
  Company Number: NL-ROCHE-708991

PATIENT
  Sex: Male

DRUGS (8)
  1. BEVACIZUMAB [Suspect]
     Indication: COLORECTAL CANCER
     Dosage: DATE OF LAST CYCLE: 13 JULY 2009
     Route: 042
     Dates: start: 20080411, end: 20090713
  2. CAPECITABINE [Suspect]
     Indication: COLORECTAL CANCER
     Dosage: DATE OF LAST CYCLE: 21 JULY 2009
     Route: 048
     Dates: start: 20080411, end: 20090721
  3. OXALIPLATIN [Suspect]
     Indication: COLORECTAL CANCER
     Dosage: DATE OF LAST CYCLE: 13 JULY 2009
     Route: 042
     Dates: start: 20080411, end: 20090713
  4. FUROSEMIDE [Concomitant]
  5. SPIRONOLACTONE [Concomitant]
  6. METOCLOPRAMIDE [Concomitant]
  7. TRAMADOL [Concomitant]
  8. MOVICOLON [Concomitant]

REACTIONS (6)
  - ABDOMINAL PAIN [None]
  - ASCITES [None]
  - HYPOPHAGIA [None]
  - NAUSEA [None]
  - SUDDEN DEATH [None]
  - VOMITING [None]
